FAERS Safety Report 5514444-8 (Version None)
Quarter: 2007Q4

REPORT INFORMATION
  Report Type: 
  Country: None (occurrence: None)
  Receive Date: 20071113
  Receipt Date: 20070522
  Transmission Date: 20080405
  Serious: No
  Sender: FDA-Public Use
  Company Number: A0652356A

PATIENT
  Age: 78 Year
  Sex: Male

DRUGS (9)
  1. COREG [Suspect]
     Indication: HYPERTENSION
     Dosage: 25MG TWICE PER DAY
     Route: 048
  2. LORETIN [Concomitant]
  3. ZOCOR [Concomitant]
  4. LANOXIN [Concomitant]
  5. LASIX [Concomitant]
  6. NIACIN [Concomitant]
  7. ASPIRIN [Concomitant]
  8. MULTI-VITAMIN [Concomitant]
  9. TYLENOL [Concomitant]

REACTIONS (2)
  - BLOOD PRESSURE INCREASED [None]
  - MEMORY IMPAIRMENT [None]
